FAERS Safety Report 17070741 (Version 1)
Quarter: 2019Q4

REPORT INFORMATION
  Report Type: Spontaneous
  Country: FR (occurrence: FR)
  Receive Date: 20191125
  Receipt Date: 20191125
  Transmission Date: 20200122
  Serious: Yes (Life-Threatening)
  Sender: FDA-Public Use
  Company Number: FR-PFIZER INC-2019502447

PATIENT
  Age: 51 Year
  Sex: Female

DRUGS (9)
  1. NORSET [Concomitant]
     Active Substance: MIRTAZAPINE
     Dosage: 2 DF, 1X/DAY
     Route: 048
  2. COCAINE [Suspect]
     Active Substance: COCAINE
     Dosage: UNK
     Route: 042
     Dates: start: 20171123, end: 20171123
  3. BUPRENORPHINE. [Concomitant]
     Active Substance: BUPRENORPHINE
     Indication: DRUG DEPENDENCE
     Dosage: UNK
     Route: 048
  4. SERTRALINE HCL [Suspect]
     Active Substance: SERTRALINE HYDROCHLORIDE
     Dosage: 50 MG, 1X/DAY
     Route: 048
  5. LOXAPINE  BASE [Suspect]
     Active Substance: LOXAPINE
     Dosage: 2 DF, 1X/DAY
     Route: 048
  6. THERALENE [Concomitant]
     Active Substance: TRIMEPRAZINE
     Dosage: 2 DF, 1X/DAY
     Route: 048
  7. CANNABIS [Suspect]
     Active Substance: CANNABIS SATIVA SUBSP. INDICA TOP
     Dosage: UNK
     Route: 045
     Dates: start: 20171123, end: 20171123
  8. OXAZEPAM. [Concomitant]
     Active Substance: OXAZEPAM
     Dosage: 6 DF, 1X/DAY
     Route: 048
  9. ZOPICLONE [Concomitant]
     Active Substance: ZOPICLONE
     Dosage: 7.5 MG, 1X/DAY
     Route: 048

REACTIONS (4)
  - Hyperthermia [Recovered/Resolved]
  - Extrapyramidal disorder [Recovered/Resolved]
  - Rhabdomyolysis [Recovering/Resolving]
  - Generalised tonic-clonic seizure [Recovered/Resolved with Sequelae]

NARRATIVE: CASE EVENT DATE: 20171123
